FAERS Safety Report 20634287 (Version 1)
Quarter: 2022Q1

REPORT INFORMATION
  Report Type: Spontaneous
  Country: US (occurrence: US)
  Receive Date: 20220325
  Receipt Date: 20220325
  Transmission Date: 20220423
  Serious: Yes (Death)
  Sender: FDA-Public Use
  Company Number: US-JNJFOC-20220341771

PATIENT
  Age: 81 Year
  Sex: Female
  Weight: 52.210 kg

DRUGS (19)
  1. OPSUMIT [Suspect]
     Active Substance: MACITENTAN
     Indication: Pulmonary arterial hypertension
     Route: 048
  2. LEVOTHYROXINE [Concomitant]
     Active Substance: LEVOTHYROXINE
     Indication: Thyroid disorder
  3. MEDICAL FOOD [Concomitant]
     Active Substance: MEDICAL FOOD
     Indication: Routine health maintenance
  4. FLUTICASONE [Concomitant]
     Active Substance: FLUTICASONE
     Indication: Nasal congestion
     Route: 045
  5. TORSEMIDE [Concomitant]
     Active Substance: TORSEMIDE
     Indication: Peripheral swelling
  6. TORSEMIDE [Concomitant]
     Active Substance: TORSEMIDE
  7. TRAZODONE [Concomitant]
     Active Substance: TRAZODONE HYDROCHLORIDE
     Indication: Insomnia
  8. POTASSIUM [Concomitant]
     Active Substance: POTASSIUM
     Indication: Product used for unknown indication
  9. SILDENAFIL [Concomitant]
     Active Substance: SILDENAFIL
     Dates: start: 2018
  10. FOLIC ACID [Concomitant]
     Active Substance: FOLIC ACID
     Indication: Product used for unknown indication
  11. OMEPRAZOLE [Concomitant]
     Active Substance: OMEPRAZOLE
     Indication: Gastrooesophageal reflux disease
  12. CALCIUM [Concomitant]
     Active Substance: CALCIUM
  13. HERBALS\LINSEED OIL [Concomitant]
     Active Substance: HERBALS\LINSEED OIL
  14. ASPIRIN [Concomitant]
     Active Substance: ASPIRIN
  15. PROLIA [Concomitant]
     Active Substance: DENOSUMAB
     Dosage: EVERY 6 MONTHS
  16. NITROGLYCERIN [Concomitant]
     Active Substance: NITROGLYCERIN
     Indication: Raynaud^s phenomenon
     Dosage: APPLIED ON HANDS DAILY
  17. ASCORBIC ACID [Concomitant]
     Active Substance: ASCORBIC ACID
  18. PEPCID [Concomitant]
     Active Substance: FAMOTIDINE
  19. FERROUS SULFATE [Concomitant]
     Active Substance: FERROUS SULFATE

REACTIONS (3)
  - Traumatic intracranial haemorrhage [Fatal]
  - Fall [Fatal]
  - Peripheral swelling [Unknown]
